FAERS Safety Report 10475422 (Version 1)
Quarter: 2014Q3

REPORT INFORMATION
  Report Type: Spontaneous
  Country: US (occurrence: None)
  Receive Date: 20140924
  Receipt Date: 20140924
  Transmission Date: 20150326
  Serious: No
  Sender: FDA-Public Use
  Company Number: None

PATIENT

DRUGS (1)
  1. JO ATOMIC CLITORAL GEL MEDIUM STRENGTH [Suspect]
     Active Substance: CAPSICUM OLEORESIN\CYCLOMETHICONE 5\DIMETHICONE\PEPPERMINT
     Indication: ILL-DEFINED DISORDER
     Dosage: USED TWICE?
     Dates: start: 20140908, end: 20140910

REACTIONS (1)
  - Hypoaesthesia [None]

NARRATIVE: CASE EVENT DATE: 20140908
